FAERS Safety Report 17158365 (Version 1)
Quarter: 2019Q4

REPORT INFORMATION
  Report Type: Spontaneous
  Country: US (occurrence: US)
  Receive Date: 20191216
  Receipt Date: 20191216
  Transmission Date: 20200122
  Serious: No
  Sender: FDA-Public Use
  Company Number: US-PFIZER INC-2019220661

PATIENT
  Age: 81 Year
  Sex: Female
  Weight: 61.23 kg

DRUGS (2)
  1. IBRANCE [Suspect]
     Active Substance: PALBOCICLIB
     Indication: BREAST CANCER FEMALE
     Dosage: 125 MG, CYCLIC (ONCE A DAY, FOR 21 DAYS THEN OFF FOR 7 DAYS)
     Route: 048
     Dates: start: 2018
  2. LETROZOLE. [Concomitant]
     Active Substance: LETROZOLE
     Dosage: 2.5 MG, 1X/DAY; (2.5MG PILL ONCE A DAY BY MOUTH, EVERYDAY)
     Route: 048
     Dates: start: 2018

REACTIONS (3)
  - Stomatitis [Not Recovered/Not Resolved]
  - Viral infection [Unknown]
  - Product dose omission [Unknown]

NARRATIVE: CASE EVENT DATE: 20190520
